FAERS Safety Report 4935895-6 (Version None)
Quarter: 2006Q1

REPORT INFORMATION
  Report Type: 
  Country: None (occurrence: None)
  Receive Date: 20060302
  Receipt Date: 20060208
  Transmission Date: 20060701
  Serious: Yes (Other)
  Sender: FDA-Public Use
  Company Number: US200602002639

PATIENT
  Age: 75 Year
  Sex: Female

DRUGS (3)
  1. FORTEO [Suspect]
     Indication: OSTEOPOROSIS
     Dates: start: 20050601
  2. FORTEO PEN (FORTEO PEN) [Concomitant]
  3. MONTELEUKAST SODIUM (MONTELEUKAST SODIUM) [Concomitant]

REACTIONS (5)
  - CONDITION AGGRAVATED [None]
  - FEELING ABNORMAL [None]
  - IMPAIRED HEALING [None]
  - PELVIC DEFORMITY [None]
  - PELVIC FRACTURE [None]
